FAERS Safety Report 6274860-6 (Version None)
Quarter: 2009Q3

REPORT INFORMATION
  Report Type: 
  Country: None (occurrence: None)
  Receive Date: 20090721
  Receipt Date: 20090710
  Transmission Date: 20100115
  Serious: Yes (Other)
  Sender: FDA-Public Use
  Company Number: ES-TEVA-202337USA

PATIENT
  Age: 49 Year
  Sex: Male

DRUGS (3)
  1. BISELECT [Suspect]
     Indication: ESSENTIAL HYPERTENSION
     Route: 061
  2. DOXAZOSIN MESYLATE [Suspect]
     Indication: ESSENTIAL HYPERTENSION
     Route: 048
  3. VALSARTAN [Suspect]
     Indication: ESSENTIAL HYPERTENSION
     Route: 048

REACTIONS (1)
  - SARCOIDOSIS [None]
